FAERS Safety Report 7677618-6 (Version None)
Quarter: 2011Q3

REPORT INFORMATION
  Report Type: 
  Country: None (occurrence: None)
  Receive Date: 20110811
  Receipt Date: 20110804
  Transmission Date: 20111222
  Serious: Yes (Death, Other)
  Sender: FDA-Public Use
  Company Number: JP-ROCHE-724706

PATIENT
  Sex: Male
  Weight: 50 kg

DRUGS (7)
  1. ACTEMRA [Suspect]
     Indication: PLEURAL MESOTHELIOMA
     Route: 041
     Dates: start: 20100827, end: 20100827
  2. PREDNISOLONE [Concomitant]
     Route: 048
     Dates: start: 20100817, end: 20100829
  3. VERAPAMIL HCL [Concomitant]
     Route: 041
     Dates: start: 20100829, end: 20100829
  4. FENTANYL [Concomitant]
     Route: 062
     Dates: start: 20100621, end: 20100829
  5. DIGOXIN [Concomitant]
     Route: 048
     Dates: start: 20100628, end: 20100829
  6. ASPIRIN [Concomitant]
     Route: 048
     Dates: end: 20100829
  7. OXINORM [Concomitant]
     Route: 048
     Dates: start: 20100608, end: 20100829

REACTIONS (4)
  - BRADYCARDIA [None]
  - CARDIAC ARREST [None]
  - HYPERKALAEMIA [None]
  - SUPRAVENTRICULAR TACHYCARDIA [None]
